FAERS Safety Report 9498668 (Version 1)
Quarter: 2013Q3

REPORT INFORMATION
  Report Type: Spontaneous
  Country: US (occurrence: US)
  Receive Date: 20130904
  Receipt Date: 20130904
  Transmission Date: 20140515
  Serious: No
  Sender: FDA-Public Use
  Company Number: US-PFIZER INC-2013251786

PATIENT
  Sex: Female

DRUGS (2)
  1. BOSUTINIB [Suspect]
     Indication: CHRONIC MYELOID LEUKAEMIA
     Dosage: 500 MG, 1X/DAY
     Route: 048
     Dates: start: 20130812, end: 20130819
  2. ZOFRAN [Concomitant]
     Indication: NAUSEA
     Dosage: UNK
     Dates: end: 201308

REACTIONS (1)
  - Rash [Recovered/Resolved]
